FAERS Safety Report 7753362-1 (Version None)
Quarter: 2011Q3

REPORT INFORMATION
  Report Type: 
  Country: None (occurrence: None)
  Receive Date: 20110913
  Receipt Date: 20110902
  Transmission Date: 20111222
  Serious: Yes (Other)
  Sender: FDA-Public Use
  Company Number: 122804

PATIENT
  Age: 7 Year
  Sex: Male

DRUGS (1)
  1. DAUNORUBICIN HCL [Suspect]
     Indication: PRECURSOR B-LYMPHOBLASTIC LYMPHOMA
     Dosage: 99MG TOTAL/ IV
     Route: 042
     Dates: start: 20110307

REACTIONS (1)
  - HYPOKALAEMIA [None]
